FAERS Safety Report 24609190 (Version 2)
Quarter: 2025Q1

REPORT INFORMATION
  Report Type: Spontaneous
  Country: FR (occurrence: FR)
  Receive Date: 20241112
  Receipt Date: 20250116
  Transmission Date: 20250409
  Serious: Yes (Other)
  Sender: PFIZER
  Company Number: FR-PFM-2024-05972

PATIENT
  Age: 51 Year
  Sex: Female

DRUGS (5)
  1. ENCORAFENIB [Suspect]
     Active Substance: ENCORAFENIB
     Indication: Adenocarcinoma pancreas
     Dosage: 300 MG DAILY
     Dates: start: 202104
  2. BINIMETINIB [Suspect]
     Active Substance: BINIMETINIB
     Indication: Adenocarcinoma pancreas
     Dosage: 90 MG DAILY
     Dates: start: 202104, end: 202201
  3. BINIMETINIB [Suspect]
     Active Substance: BINIMETINIB
     Dosage: 90 MG DAILY
     Dates: start: 202207
  4. BINIMETINIB [Suspect]
     Active Substance: BINIMETINIB
     Dosage: 60 MG DAILY
     Dates: start: 202209
  5. CETUXIMAB [Suspect]
     Active Substance: CETUXIMAB
     Indication: Adenocarcinoma pancreas
     Dates: start: 202104

REACTIONS (7)
  - Renal failure [Recovered/Resolved]
  - Skin toxicity [Unknown]
  - Weight increased [Unknown]
  - Off label use [Unknown]
  - Drug effective for unapproved indication [Unknown]
  - Off label use [Unknown]
  - Product use issue [Unknown]

NARRATIVE: CASE EVENT DATE: 20210401
